FAERS Safety Report 10258209 (Version 1)
Quarter: 2014Q2

REPORT INFORMATION
  Report Type: Spontaneous
  Country: US (occurrence: None)
  Receive Date: 20140623
  Receipt Date: 20140623
  Transmission Date: 20141212
  Serious: Yes (Other)
  Sender: FDA-Public Use
  Company Number: None

PATIENT
  Age: 60 Year
  Sex: Female

DRUGS (5)
  1. ERIVEDGE [Suspect]
     Indication: NEOPLASM
     Dosage: ONE 150 MG TAB DAILY BY MOUTH
     Route: 048
     Dates: start: 20140201, end: 20140616
  2. GABAPENTIN [Concomitant]
  3. HYDROCODONE/ACETAMIOPHEN [Concomitant]
  4. ALPRAZOLAM [Concomitant]
  5. EXCEDRINE [Concomitant]

REACTIONS (4)
  - Nausea [None]
  - Vomiting [None]
  - Pyrexia [None]
  - Disorientation [None]
